FAERS Safety Report 6834635-3 (Version None)
Quarter: 2010Q3

REPORT INFORMATION
  Report Type: 
  Country: None (occurrence: None)
  Receive Date: 20100712
  Receipt Date: 20070415
  Transmission Date: 20110219
  Serious: No
  Sender: FDA-Public Use
  Company Number: US-PFIZER INC-2007030725

PATIENT
  Sex: Female
  Weight: 69.4 kg

DRUGS (5)
  1. CHANTIX [Suspect]
     Indication: SMOKING CESSATION THERAPY
     Dates: start: 20070329, end: 20070413
  2. AVANDIA [Concomitant]
  3. ZETIA [Concomitant]
  4. TRICOR [Concomitant]
  5. ZESTORETIC [Concomitant]

REACTIONS (4)
  - ABDOMINAL PAIN [None]
  - FLATULENCE [None]
  - INFLUENZA [None]
  - NAUSEA [None]
